FAERS Safety Report 4427102-8 (Version None)
Quarter: 2004Q3

REPORT INFORMATION
  Report Type: 
  Country: None (occurrence: None)
  Receive Date: 20040811
  Receipt Date: 20040803
  Transmission Date: 20050211
  Serious: Yes (Life-Threatening, Hospitalization)
  Sender: FDA-Public Use
  Company Number: 0400034EN0020P

PATIENT
  Age: 7 Year
  Sex: Female

DRUGS (4)
  1. ONCASPAR [Suspect]
     Indication: ACUTE LYMPHOCYTIC LEUKAEMIA
     Dates: end: 20040724
  2. MORPHINE [Suspect]
     Indication: PAIN
     Dates: start: 20040701
  3. VINCRISTINE [Concomitant]
  4. PREDNISONE [Concomitant]

REACTIONS (6)
  - AMMONIA INCREASED [None]
  - COMA [None]
  - DRUG INTERACTION [None]
  - PAIN [None]
  - PANCREATITIS HAEMORRHAGIC [None]
  - RESPIRATORY DEPRESSION [None]
